FAERS Safety Report 12929970 (Version 1)
Quarter: 2016Q4

REPORT INFORMATION
  Report Type: Spontaneous
  Country: US (occurrence: US)
  Receive Date: 20161110
  Receipt Date: 20161110
  Transmission Date: 20170207
  Serious: No
  Sender: FDA-Public Use
  Company Number: US-ELI_LILLY_AND_COMPANY-US201610010713

PATIENT
  Sex: Female

DRUGS (1)
  1. CYMBALTA [Suspect]
     Active Substance: DULOXETINE HYDROCHLORIDE
     Indication: HERNIA PAIN
     Dosage: 30 MG, UNKNOWN
     Route: 065
     Dates: start: 201609

REACTIONS (3)
  - Lacrimation increased [Unknown]
  - Somnolence [Unknown]
  - Off label use [Unknown]
